FAERS Safety Report 6523642-6 (Version None)
Quarter: 2009Q4

REPORT INFORMATION
  Report Type: 
  Country: None (occurrence: None)
  Receive Date: 20091231
  Receipt Date: 20091124
  Transmission Date: 20100525
  Serious: Yes (Hospitalization)
  Sender: FDA-Public Use
  Company Number: CH-ASTRAZENECA-2009SE33111

PATIENT
  Age: 47 Year
  Sex: Female

DRUGS (6)
  1. NEXIUM [Suspect]
     Indication: GASTRITIS
     Route: 048
     Dates: start: 20090604, end: 20090610
  2. NEXIUM [Suspect]
     Indication: DUODENITIS
     Route: 048
     Dates: start: 20090604, end: 20090610
  3. IRFEN [Suspect]
     Indication: PAIN
     Route: 048
     Dates: start: 20090604, end: 20090610
  4. MORPHINE [Concomitant]
     Indication: PAIN
     Dates: start: 20090604
  5. NEURONTIN [Concomitant]
     Indication: PAIN
     Dates: start: 20090604
  6. PARACETAMOL [Concomitant]

REACTIONS (2)
  - ABDOMINAL PAIN [None]
  - HEPATOCELLULAR INJURY [None]
